FAERS Safety Report 5343487-2 (Version None)
Quarter: 2007Q2

REPORT INFORMATION
  Report Type: 
  Country: None (occurrence: None)
  Receive Date: 20070604
  Receipt Date: 20070522
  Transmission Date: 20071010
  Serious: Yes (Other)
  Sender: FDA-Public Use
  Company Number: PHHO2007AR08858

PATIENT
  Age: 72 Year
  Sex: Male

DRUGS (1)
  1. ZELMAC / HTF 919A [Suspect]

REACTIONS (2)
  - CARDIAC DISORDER [None]
  - THROMBOSIS [None]
